FAERS Safety Report 8402013-1 (Version None)
Quarter: 2012Q2

REPORT INFORMATION
  Report Type: 
  Country: None (occurrence: None)
  Receive Date: 20120529
  Receipt Date: 20020121
  Transmission Date: 20120825
  Serious: Yes (Life-Threatening, Hospitalization)
  Sender: FDA-Public Use
  Company Number: 02100-JPN-01-0123

PATIENT
  Age: 81 Year
  Sex: Male
  Weight: 50 kg

DRUGS (19)
  1. ALPRAZOLAM [Concomitant]
  2. PURSENNID (SENNA LEAF) [Concomitant]
  3. PLETAL [Suspect]
     Indication: PERIPHERAL ARTERIAL OCCLUSIVE DISEASE
     Dosage: 100 MG, QD, ORAL 100 MG, BID, ORAL
     Route: 048
     Dates: start: 20011115, end: 20011211
  4. PLETAL [Suspect]
     Indication: ANGINA PECTORIS
     Dosage: 100 MG, QD, ORAL 100 MG, BID, ORAL
     Route: 048
     Dates: start: 20011115, end: 20011211
  5. PLETAL [Suspect]
     Indication: PERIPHERAL ARTERIAL OCCLUSIVE DISEASE
     Dosage: 100 MG, QD, ORAL 100 MG, BID, ORAL
     Route: 048
     Dates: start: 19960101, end: 20011114
  6. PLETAL [Suspect]
     Indication: ANGINA PECTORIS
     Dosage: 100 MG, QD, ORAL 100 MG, BID, ORAL
     Route: 048
     Dates: start: 19960101, end: 20011114
  7. ASPIRIN [Concomitant]
  8. OPALMON (LIMAPROST) [Concomitant]
  9. NITRODERM [Concomitant]
  10. ISOSORBIDE MONONITRATE [Concomitant]
  11. BAYMYCARD (NISOLDIPINE) [Concomitant]
  12. NITROPEN (GLYCERYL TRINITRATE) [Concomitant]
  13. DIGOXIN [Concomitant]
  14. UROCALUN (SALICIN) [Concomitant]
  15. LASIX [Concomitant]
  16. HALCION [Concomitant]
  17. ALLOPURINOL [Concomitant]
  18. SIGMART (NICORANDIL) [Concomitant]
  19. SELBEX (TEPRENONE) [Concomitant]

REACTIONS (3)
  - ANGINA UNSTABLE [None]
  - VENTRICULAR TACHYCARDIA [None]
  - VENTRICULAR EXTRASYSTOLES [None]
